FAERS Safety Report 11330855 (Version 2)
Quarter: 2015Q3

REPORT INFORMATION
  Report Type: Spontaneous
  Country: US (occurrence: US)
  Receive Date: 20150803
  Receipt Date: 20150819
  Transmission Date: 20151125
  Serious: No
  Sender: FDA-Public Use
  Company Number: US-GLAXOSMITHKLINE-US2015GSK109267

PATIENT
  Sex: Male

DRUGS (10)
  1. WELLBUTRIN SR [Suspect]
     Active Substance: BUPROPION HYDROCHLORIDE
     Indication: BIPOLAR I DISORDER
     Dosage: 150 MG, UNK
     Dates: start: 2011, end: 2014
  2. WELLBUTRIN SR [Suspect]
     Active Substance: BUPROPION HYDROCHLORIDE
     Indication: BIPOLAR DISORDER
  3. PROZAC [Suspect]
     Active Substance: FLUOXETINE HYDROCHLORIDE
     Indication: BIPOLAR I DISORDER
     Dosage: UNK
     Dates: start: 201407
  4. LAMICTAL [Suspect]
     Active Substance: LAMOTRIGINE
     Indication: CONVULSION PROPHYLAXIS
  5. LAMICTAL [Suspect]
     Active Substance: LAMOTRIGINE
     Indication: BIPOLAR DISORDER
  6. LAMICTAL [Suspect]
     Active Substance: LAMOTRIGINE
     Indication: BIPOLAR I DISORDER
     Dosage: UNK
     Dates: start: 2001
  7. PROZAC [Suspect]
     Active Substance: FLUOXETINE HYDROCHLORIDE
     Indication: SEIZURE
  8. VENLAFAXINE [Suspect]
     Active Substance: VENLAFAXINE HYDROCHLORIDE
     Indication: BIPOLAR I DISORDER
     Dosage: 37.5 MG, UNK
     Dates: start: 201506
  9. WELLBUTRIN SR [Suspect]
     Active Substance: BUPROPION HYDROCHLORIDE
     Indication: SEIZURE
  10. LAMICTAL [Suspect]
     Active Substance: LAMOTRIGINE
     Indication: SEIZURE

REACTIONS (6)
  - Mental disorder [Unknown]
  - Mania [Unknown]
  - Depression [Recovering/Resolving]
  - Abdominal discomfort [Unknown]
  - Drug ineffective [Unknown]
  - Memory impairment [Unknown]
